FAERS Safety Report 8004894-2 (Version None)
Quarter: 2011Q4

REPORT INFORMATION
  Report Type: 
  Country: None (occurrence: None)
  Receive Date: 20111220
  Receipt Date: 20111205
  Transmission Date: 20120403
  Serious: Yes (Other)
  Sender: FDA-Public Use
  Company Number: FK201102898

PATIENT
  Age: 23 Year
  Sex: Female

DRUGS (4)
  1. CISPLATIN [Concomitant]
  2. ALLOPURINOL [Concomitant]
  3. BLEOMYCIN (MANUFACTURER UNKNOWN) (BLEOMYCIN0 (BLEOMYCIN) [Suspect]
     Indication: OVARIAN GERM CELL CANCER
     Dosage: 30 MG
  4. ETOPOSIDE [Concomitant]

REACTIONS (13)
  - HYDRONEPHROSIS [None]
  - HYPERKALAEMIA [None]
  - OLIGURIA [None]
  - PULMONARY FIBROSIS [None]
  - HYPERURICAEMIA [None]
  - CONTINUOUS HAEMODIAFILTRATION [None]
  - PNEUMONITIS [None]
  - FEBRILE NEUTROPENIA [None]
  - INTERSTITIAL LUNG DISEASE [None]
  - LEFT VENTRICULAR DYSFUNCTION [None]
  - TUMOUR LYSIS SYNDROME [None]
  - HYPERPHOSPHATAEMIA [None]
  - BLOOD CREATININE INCREASED [None]
